FAERS Safety Report 7830020-6 (Version None)
Quarter: 2011Q4

REPORT INFORMATION
  Report Type: 
  Country: None (occurrence: None)
  Receive Date: 20111021
  Receipt Date: 20111013
  Transmission Date: 20120403
  Serious: Yes (Death)
  Sender: FDA-Public Use
  Company Number: PL-UCBSA-043404

PATIENT
  Age: 35 Year
  Sex: Female
  Weight: 70 kg

DRUGS (2)
  1. VALPROATE SODIUM [Concomitant]
     Indication: EPILEPSY
     Dosage: TOTAL DAILY DOSE: 3 G
     Route: 048
     Dates: start: 20090101, end: 20110101
  2. KEPPRA [Suspect]
     Indication: EPILEPSY
     Dosage: DAILY DOSE: (1.5-0.5-1.0 G)
     Route: 048
     Dates: start: 20090101, end: 20110101

REACTIONS (2)
  - ASPHYXIA [None]
  - CONVULSION [None]
